FAERS Safety Report 25796085 (Version 1)
Quarter: 2025Q3

REPORT INFORMATION
  Report Type: Spontaneous
  Country: EU (occurrence: EU)
  Receive Date: 20250912
  Receipt Date: 20250912
  Transmission Date: 20251020
  Serious: Yes (Death)
  Sender: MYLAN
  Company Number: EU-SAMSUNG BIOEPIS-SB-2025-29740

PATIENT
  Age: 49 Year
  Sex: Female

DRUGS (20)
  1. PACLITAXEL [Suspect]
     Active Substance: PACLITAXEL
     Indication: Vaginal cancer metastatic
     Dosage: 80 MILLIGRAM/SQ. METER, QW (PACLITAXTEL USED WITH TRASTUZUMAB)
  2. PACLITAXEL [Suspect]
     Active Substance: PACLITAXEL
     Dosage: 80 MILLIGRAM/SQ. METER, QW (PACLITAXTEL USED WITH TRASTUZUMAB)
  3. PACLITAXEL [Suspect]
     Active Substance: PACLITAXEL
     Dosage: 80 MILLIGRAM/SQ. METER, QW (PACLITAXTEL USED WITH TRASTUZUMAB)
     Route: 065
  4. PACLITAXEL [Suspect]
     Active Substance: PACLITAXEL
     Dosage: 80 MILLIGRAM/SQ. METER, QW (PACLITAXTEL USED WITH TRASTUZUMAB)
     Route: 065
  5. PACLITAXEL [Suspect]
     Active Substance: PACLITAXEL
     Dosage: 135 MILLIGRAM/KILOGRAM, Q3W (PACLITAXEL USED WITH BEVACIZUMAB)
  6. PACLITAXEL [Suspect]
     Active Substance: PACLITAXEL
     Dosage: 135 MILLIGRAM/KILOGRAM, Q3W (PACLITAXEL USED WITH BEVACIZUMAB)
  7. PACLITAXEL [Suspect]
     Active Substance: PACLITAXEL
     Dosage: 135 MILLIGRAM/KILOGRAM, Q3W (PACLITAXEL USED WITH BEVACIZUMAB)
     Route: 065
  8. PACLITAXEL [Suspect]
     Active Substance: PACLITAXEL
     Dosage: 135 MILLIGRAM/KILOGRAM, Q3W (PACLITAXEL USED WITH BEVACIZUMAB)
     Route: 065
  9. BEVACIZUMAB [Suspect]
     Active Substance: BEVACIZUMAB
     Indication: Vaginal cancer metastatic
     Dosage: 15 MILLIGRAM/KILOGRAM, Q3W
  10. BEVACIZUMAB [Suspect]
     Active Substance: BEVACIZUMAB
     Dosage: 15 MILLIGRAM/KILOGRAM, Q3W
     Route: 065
  11. BEVACIZUMAB [Suspect]
     Active Substance: BEVACIZUMAB
     Dosage: 15 MILLIGRAM/KILOGRAM, Q3W
     Route: 065
  12. BEVACIZUMAB [Suspect]
     Active Substance: BEVACIZUMAB
     Dosage: 15 MILLIGRAM/KILOGRAM, Q3W
  13. TRASTUZUMAB [Suspect]
     Active Substance: TRASTUZUMAB
     Indication: Vaginal cancer metastatic
     Dosage: 2 MILLIGRAM/SQ. METER, Q3W (TRASTUZUMAB 4 MG/M2 AS LOADING DOSE FOLLOWED BY 2 MG/M2 Q3W)
  14. TRASTUZUMAB [Suspect]
     Active Substance: TRASTUZUMAB
     Dosage: 2 MILLIGRAM/SQ. METER, Q3W (TRASTUZUMAB 4 MG/M2 AS LOADING DOSE FOLLOWED BY 2 MG/M2 Q3W)
     Route: 065
  15. TRASTUZUMAB [Suspect]
     Active Substance: TRASTUZUMAB
     Dosage: 2 MILLIGRAM/SQ. METER, Q3W (TRASTUZUMAB 4 MG/M2 AS LOADING DOSE FOLLOWED BY 2 MG/M2 Q3W)
     Route: 065
  16. TRASTUZUMAB [Suspect]
     Active Substance: TRASTUZUMAB
     Dosage: 2 MILLIGRAM/SQ. METER, Q3W (TRASTUZUMAB 4 MG/M2 AS LOADING DOSE FOLLOWED BY 2 MG/M2 Q3W)
  17. CARBOPLATIN [Suspect]
     Active Substance: CARBOPLATIN
     Indication: Vaginal cancer metastatic
     Dosage: UNK UNK, Q3W (CARBOPLATIN AUC 5)
  18. CARBOPLATIN [Suspect]
     Active Substance: CARBOPLATIN
     Dosage: UNK UNK, Q3W (CARBOPLATIN AUC 5)
     Route: 065
  19. CARBOPLATIN [Suspect]
     Active Substance: CARBOPLATIN
     Dosage: UNK UNK, Q3W (CARBOPLATIN AUC 5)
     Route: 065
  20. CARBOPLATIN [Suspect]
     Active Substance: CARBOPLATIN
     Dosage: UNK UNK, Q3W (CARBOPLATIN AUC 5)

REACTIONS (2)
  - Disease progression [Fatal]
  - Off label use [Unknown]
